FAERS Safety Report 5058991-4 (Version None)
Quarter: 2006Q3

REPORT INFORMATION
  Report Type: 
  Country: None (occurrence: None)
  Receive Date: 20060719
  Receipt Date: 20060703
  Transmission Date: 20061208
  Serious: Yes (Hospitalization)
  Sender: FDA-Public Use
  Company Number: TRP_0809_2006

PATIENT
  Age: 47 Year
  Sex: Female

DRUGS (2)
  1. RIBASPHERE [Suspect]
     Indication: HEPATITIS C
     Dosage: DF PO
     Route: 048
     Dates: end: 20060501
  2. PEG-INTRON [Suspect]
     Indication: HEPATITIS C
     Dosage: DF SC
     Route: 058
     Dates: end: 20060501

REACTIONS (9)
  - BLISTER [None]
  - ECZEMA [None]
  - INJECTION SITE URTICARIA [None]
  - PAIN [None]
  - PRURITUS [None]
  - RASH PUSTULAR [None]
  - SKIN LESION [None]
  - TREMOR [None]
  - ULCER [None]
